FAERS Safety Report 7069646-9 (Version None)
Quarter: 2010Q4

REPORT INFORMATION
  Report Type: 
  Country: None (occurrence: None)
  Receive Date: 20101028
  Receipt Date: 20100507
  Transmission Date: 20110411
  Serious: No
  Sender: FDA-Public Use
  Company Number: US-WYE-H15306010

PATIENT
  Sex: Female
  Weight: 65.83 kg

DRUGS (7)
  1. EFFEXOR [Suspect]
     Route: 048
     Dates: start: 20060601
  2. EFFEXOR [Suspect]
     Route: 048
  3. EFFEXOR [Suspect]
     Route: 048
  4. CITRACAL PLUS D [Concomitant]
  5. ALENDRONATE SODIUM [Concomitant]
  6. PREMARIN [Concomitant]
  7. ACETYLSALICYLIC ACID [Concomitant]

REACTIONS (2)
  - BLOOD CHOLESTEROL INCREASED [None]
  - HYPERTENSION [None]
